FAERS Safety Report 7078695-6 (Version None)
Quarter: 2010Q4

REPORT INFORMATION
  Report Type: 
  Country: None (occurrence: None)
  Receive Date: 20101101
  Receipt Date: 20101101
  Transmission Date: 20110411
  Serious: Yes (Other)
  Sender: FDA-Public Use
  Company Number: None

PATIENT
  Age: 85 Year
  Sex: Male
  Weight: 77.1115 kg

DRUGS (1)
  1. HYDROCODONE BITARTRATE + ACETAMINOPHEN [Suspect]
     Indication: ANALGESIC THERAPY
     Dosage: 5MG/500MG TABS 1-2 TABS/3-6HRS BY MOUTH
     Route: 048
     Dates: start: 20101018

REACTIONS (3)
  - BALANCE DISORDER [None]
  - DIZZINESS [None]
  - NO THERAPEUTIC RESPONSE [None]
